FAERS Safety Report 6132963-0 (Version None)
Quarter: 2009Q1

REPORT INFORMATION
  Report Type: 
  Country: None (occurrence: None)
  Receive Date: 20090325
  Receipt Date: 20090325
  Transmission Date: 20090719
  Serious: No
  Sender: FDA-Public Use
  Company Number: None

PATIENT
  Age: 62 Year
  Sex: Male
  Weight: 98.1 kg

DRUGS (1)
  1. DOXAZOSIN MESYLATE [Suspect]
     Dosage: 4 MG AT BEDTIME PO
     Route: 048
     Dates: start: 20090310, end: 20090324

REACTIONS (6)
  - CHEST PAIN [None]
  - DIZZINESS [None]
  - HEADACHE [None]
  - HYPERTENSION [None]
  - OEDEMA PERIPHERAL [None]
  - TINNITUS [None]
